FAERS Safety Report 20850626 (Version 1)
Quarter: 2022Q2

REPORT INFORMATION
  Report Type: Spontaneous
  Country: US (occurrence: None)
  Receive Date: 20220518
  Receipt Date: 20220518
  Transmission Date: 20220721
  Serious: No
  Sender: FDA-Public Use
  Company Number: None

PATIENT
  Age: 64 Year
  Sex: Male
  Weight: 78.75 kg

DRUGS (1)
  1. PROAIR HFA [Suspect]
     Active Substance: ALBUTEROL SULFATE
     Indication: Bronchitis
     Dosage: OTHER QUANTITY : 1 INHALATION(S);?FREQUENCY : EVERY 6 HOURS;?
     Route: 055
     Dates: start: 20220507, end: 20220517

REACTIONS (3)
  - Drug ineffective [None]
  - Device delivery system issue [None]
  - Product substitution issue [None]

NARRATIVE: CASE EVENT DATE: 20220507
